FAERS Safety Report 7790746-X (Version None)
Quarter: 2011Q3

REPORT INFORMATION
  Report Type: 
  Country: None (occurrence: None)
  Receive Date: 20110930
  Receipt Date: 20110927
  Transmission Date: 20111222
  Serious: Yes (Other)
  Sender: FDA-Public Use
  Company Number: US-AMGEN-USASP2011048084

PATIENT
  Age: 23 Year
  Sex: Male

DRUGS (1)
  1. ENBREL [Suspect]
     Indication: PSORIASIS
     Dosage: 50 MG, 2 TIMES/WK
     Dates: start: 20110603, end: 20110913

REACTIONS (5)
  - NAUSEA [None]
  - DECREASED APPETITE [None]
  - DECREASED INTEREST [None]
  - FATIGUE [None]
  - DEPRESSED MOOD [None]
